FAERS Safety Report 22293259 (Version 1)
Quarter: 2023Q2

REPORT INFORMATION
  Report Type: Spontaneous
  Country: US (occurrence: US)
  Receive Date: 20230508
  Receipt Date: 20230508
  Transmission Date: 20230722
  Serious: No
  Sender: FDA-Public Use
  Company Number: US-JNJFOC-20230509849

PATIENT
  Sex: Female

DRUGS (2)
  1. OPSUMIT [Suspect]
     Active Substance: MACITENTAN
     Indication: Product used for unknown indication
     Route: 048
     Dates: start: 20230327
  2. OPSUMIT [Suspect]
     Active Substance: MACITENTAN
     Dosage: 1 TABLET EVERY OTHER DAY
     Route: 048

REACTIONS (1)
  - Treatment noncompliance [Unknown]
